FAERS Safety Report 18718793 (Version 1)
Quarter: 2021Q1

REPORT INFORMATION
  Report Type: Spontaneous
  Country: PL (occurrence: PL)
  Receive Date: 20210108
  Receipt Date: 20210108
  Transmission Date: 20210419
  Serious: Yes (Hospitalization)
  Sender: FDA-Public Use
  Company Number: PL-ASTRAZENECA-2020SF72178

PATIENT
  Age: 69 Year
  Sex: Female

DRUGS (11)
  1. KETOPROFEN. [Interacting]
     Active Substance: KETOPROFEN
     Indication: ARTHRALGIA
     Dosage: UNK UNK, PRN
     Route: 065
  2. ACETYLSALICYLIC ACID [Interacting]
     Active Substance: ASPIRIN
     Indication: UPPER RESPIRATORY TRACT INFECTION
     Dosage: UNK
     Route: 065
  3. METOPROLOL. [Interacting]
     Active Substance: METOPROLOL
     Indication: HYPERTENSION
     Dosage: 100 MILLIGRAM
     Route: 065
  4. ITRACONAZOL [Interacting]
     Active Substance: ITRACONAZOLE
     Indication: TINEA VERSICOLOUR
     Route: 065
  5. ROSUVASTATIN. [Suspect]
     Active Substance: ROSUVASTATIN
     Route: 048
  6. NIMESULID [Interacting]
     Active Substance: NIMESULIDE
     Indication: ANTIINFLAMMATORY THERAPY
     Route: 065
  7. PERINDOPRIL ARGININE/INDAPAMIDE/AMLODIPINE [Interacting]
     Active Substance: AMLODIPINE BESYLATE\INDAPAMIDE\PERINDOPRIL ARGININE
     Indication: HYPERTENSION
     Dosage: UNK UNK, QD
     Route: 065
  8. NIMESULID [Interacting]
     Active Substance: NIMESULIDE
     Indication: ANALGESIC THERAPY
     Route: 065
  9. UNSPECIFIED METOPROLOL [Interacting]
     Active Substance: METOPROLOL
     Indication: HYPERTENSION
     Route: 048
  10. PROPAFENONE. [Interacting]
     Active Substance: PROPAFENONE
     Indication: ATRIAL FIBRILLATION
     Dosage: 300 MILLIGRAM, PRN
     Route: 065
  11. DABIGATRAN [Interacting]
     Active Substance: DABIGATRAN
     Indication: ISCHAEMIC STROKE
     Route: 065

REACTIONS (6)
  - Gastrointestinal haemorrhage [Recovered/Resolved]
  - Gastritis erosive [Recovered/Resolved]
  - Drug interaction [Recovered/Resolved]
  - Asthenia [Recovered/Resolved]
  - Syncope [Recovered/Resolved]
  - Atrioventricular block complete [Recovered/Resolved]
